FAERS Safety Report 25878829 (Version 1)
Quarter: 2025Q4

REPORT INFORMATION
  Report Type: Spontaneous
  Country: US (occurrence: US)
  Receive Date: 20251003
  Receipt Date: 20251003
  Transmission Date: 20260117
  Serious: Yes (Hospitalization, Other)
  Sender: NOVO NORDISK
  Company Number: US-NOVOPROD-1532988

PATIENT
  Age: 39 Year
  Sex: Male

DRUGS (5)
  1. SEMAGLUTIDE [Suspect]
     Active Substance: SEMAGLUTIDE
     Indication: Obesity
     Dosage: 1 MG, QW
  2. SEMAGLUTIDE [Suspect]
     Active Substance: SEMAGLUTIDE
     Dosage: 1.7 MG, QW
  3. OMEPRAZOLE [Concomitant]
     Active Substance: OMEPRAZOLE
     Indication: Product used for unknown indication
     Dosage: UNK
  4. WEGOVY [Suspect]
     Active Substance: SEMAGLUTIDE
     Indication: Obesity
     Dosage: 1MG, QW
  5. WEGOVY [Suspect]
     Active Substance: SEMAGLUTIDE
     Dosage: 1.7MG,QW

REACTIONS (5)
  - Lumbosacral radiculopathy [Unknown]
  - Vitamin B1 deficiency [Recovered/Resolved]
  - Vitamin E deficiency [Recovered/Resolved]
  - Vomiting [Unknown]
  - Nausea [Unknown]
